FAERS Safety Report 21212990 (Version 1)
Quarter: 2022Q3

REPORT INFORMATION
  Report Type: Spontaneous
  Country: US (occurrence: None)
  Receive Date: 20220815
  Receipt Date: 20220815
  Transmission Date: 20221027
  Serious: Yes (Life-Threatening, Disabling)
  Sender: FDA-Public Use
  Company Number: None

PATIENT
  Age: 20 Year
  Sex: Male
  Weight: 89.1 kg

DRUGS (1)
  1. OFLOXACIN [Suspect]
     Active Substance: OFLOXACIN
     Indication: Epididymitis
     Dates: start: 20220621, end: 20220622

REACTIONS (10)
  - Panic attack [None]
  - Disorientation [None]
  - Confusional state [None]
  - Tremor [None]
  - Restlessness [None]
  - Anxiety [None]
  - Suicidal ideation [None]
  - Feeling abnormal [None]
  - Memory impairment [None]
  - Disturbance in attention [None]

NARRATIVE: CASE EVENT DATE: 20220621
